FAERS Safety Report 16307222 (Version 2)
Quarter: 2019Q3

REPORT INFORMATION
  Report Type: Report from Study
  Country: US (occurrence: US)
  Receive Date: 20190514
  Receipt Date: 20190716
  Transmission Date: 20191004
  Serious: No
  Sender: FDA-Public Use
  Company Number: US-009507513-1904USA013388

PATIENT
  Sex: Female
  Weight: 57.6 kg

DRUGS (1)
  1. IMPLANON [Suspect]
     Active Substance: ETONOGESTREL
     Dosage: 1 ROD (68 MILLIGRAM) EVERY 3 YEARS
     Route: 059
     Dates: start: 20190417, end: 20190417

REACTIONS (3)
  - Product quality issue [Unknown]
  - No adverse event [Unknown]
  - Complication of device insertion [Not Recovered/Not Resolved]
